FAERS Safety Report 9103512 (Version 1)
Quarter: 2013Q1

REPORT INFORMATION
  Report Type: Spontaneous
  Country: US (occurrence: US)
  Receive Date: 20130218
  Receipt Date: 20130218
  Transmission Date: 20140127
  Serious: Yes (Other)
  Sender: FDA-Public Use
  Company Number: US-BAYER-2013-020466

PATIENT
  Age: 35 Year
  Sex: Female
  Weight: 140.14 kg

DRUGS (3)
  1. YASMIN [Suspect]
     Indication: CONTRACEPTION
  2. OCELLA [Suspect]
  3. HYDROCHLOROTHIAZIDE [Concomitant]
     Dosage: 25 MG, DAILY

REACTIONS (1)
  - Deep vein thrombosis [Recovered/Resolved]
